FAERS Safety Report 6244991-5 (Version None)
Quarter: 2009Q2

REPORT INFORMATION
  Report Type: 
  Country: None (occurrence: None)
  Receive Date: 20090625
  Receipt Date: 20090617
  Transmission Date: 20091009
  Serious: Yes (Death, Hospitalization, Disabling, Other)
  Sender: FDA-Public Use
  Company Number: BR-ELI_LILLY_AND_COMPANY-BR200906004239

PATIENT
  Age: 81 Year
  Sex: Female

DRUGS (5)
  1. FORTEO [Suspect]
     Indication: OSTEOPOROSIS
     Dosage: 20 UG, DAILY (1/D)
     Route: 058
     Dates: start: 20090201
  2. CLONAZEPAM [Concomitant]
     Indication: SLEEP DISORDER
     Dosage: UNK, UNKNOWN
     Route: 065
  3. TRYPTANOL [Concomitant]
     Dosage: UNK, UNKNOWN
     Route: 065
  4. TEGRETOL [Concomitant]
     Dosage: UNK, UNKNOWN
     Route: 065
  5. COMPLEX B [Concomitant]
     Dosage: UNK, UNKNOWN
     Route: 065

REACTIONS (6)
  - CEREBROVASCULAR ACCIDENT [None]
  - DEATH [None]
  - DEMENTIA ALZHEIMER'S TYPE [None]
  - PARALYSIS [None]
  - PARKINSON'S DISEASE [None]
  - PYREXIA [None]
